FAERS Safety Report 8943598 (Version 1)
Quarter: 2012Q4

REPORT INFORMATION
  Report Type: 
  Country: US (occurrence: US)
  Receive Date: 20121203
  Receipt Date: 20121203
  Transmission Date: 20130627
  Serious: Yes (Hospitalization, Disabling, Other)
  Sender: FDA-Public Use
  Company Number: US-009507513-1203USA03335

PATIENT

DRUGS (10)
  1. FOSAMAX [Suspect]
     Indication: BONE DISORDER
     Dosage: 70 mg, QW
     Route: 048
     Dates: start: 200902, end: 201002
  2. FOSAMAX [Suspect]
     Indication: BONE DISORDER
     Dosage: 70 mg, QW
     Route: 048
     Dates: start: 200305, end: 201002
  3. LABETALOL HYDROCHLORIDE [Concomitant]
     Indication: BLOOD PRESSURE
     Dosage: present
     Dates: start: 1997
  4. NORVASC [Concomitant]
     Indication: BLOOD PRESSURE
     Dosage: present
     Dates: start: 1970
  5. MAXIDE [Concomitant]
     Indication: BLOOD PRESSURE
     Dosage: stop about 6mths ago
     Dates: start: 1970
  6. PRAVASTATIN SODIUM [Concomitant]
     Indication: BLOOD CHOLESTEROL
     Dosage: present
     Dates: start: 2007
  7. ZOCOR [Concomitant]
     Indication: BLOOD CHOLESTEROL
     Dosage: 40 mg, UNK
     Dates: start: 1980, end: 2007
  8. PRINIVIL [Concomitant]
     Indication: BLOOD CHOLESTEROL
     Dosage: to present
     Dates: start: 1996
  9. AMLODIPINE [Concomitant]
     Indication: BLOOD CHOLESTEROL
     Dosage: to present
     Route: 048
     Dates: start: 2009
  10. LEVOTIROXINA S.O [Concomitant]
     Indication: THYROID DISORDER
     Dosage: to present
     Dates: start: 1980

REACTIONS (37)
  - Femur fracture [Recovering/Resolving]
  - Injury [Not Recovered/Not Resolved]
  - Renal failure chronic [Not Recovered/Not Resolved]
  - Intervertebral disc disorder [Unknown]
  - Intervertebral disc protrusion [Unknown]
  - Blood disorder [Unknown]
  - Spondylolisthesis [Unknown]
  - Impaired healing [Unknown]
  - Cardiovascular disorder [Unknown]
  - Osteoarthritis [Unknown]
  - Depression [Unknown]
  - Trigger finger [Unknown]
  - Muscle strain [Unknown]
  - Intervertebral disc degeneration [Not Recovered/Not Resolved]
  - Myofascial pain syndrome [Recovering/Resolving]
  - Tendonitis [Unknown]
  - Osteoporosis [Unknown]
  - Infection [Unknown]
  - Sciatica [Unknown]
  - Synovial cyst [Not Recovered/Not Resolved]
  - Fall [Unknown]
  - Keloid scar [Unknown]
  - Anaemia of chronic disease [Unknown]
  - Orthostatic hypotension [Unknown]
  - Hyperlipidaemia [Not Recovered/Not Resolved]
  - Spinal column stenosis [Unknown]
  - Facet joint syndrome [Unknown]
  - Aortic arteriosclerosis [Unknown]
  - Sleep apnoea syndrome [Unknown]
  - Osteoarthritis [Not Recovered/Not Resolved]
  - Joint range of motion decreased [Not Recovered/Not Resolved]
  - Cough [Unknown]
  - Haematoma [Unknown]
  - Ulcer [Not Recovered/Not Resolved]
  - Back pain [Not Recovered/Not Resolved]
  - Musculoskeletal pain [Not Recovered/Not Resolved]
  - Gastrooesophageal reflux disease [Unknown]
